FAERS Safety Report 10273043 (Version 1)
Quarter: 2014Q2

REPORT INFORMATION
  Report Type: Spontaneous
  Country: US (occurrence: None)
  Receive Date: 20140627
  Receipt Date: 20140627
  Transmission Date: 20141212
  Serious: No
  Sender: FDA-Public Use
  Company Number: None

PATIENT
  Age: 80 Year
  Sex: Male
  Weight: 92.7 kg

DRUGS (1)
  1. WARFARIN [Suspect]
     Indication: CORONARY ARTERY DISEASE
     Dates: start: 20140320, end: 20140401

REACTIONS (2)
  - Haemorrhage [None]
  - International normalised ratio increased [None]
